FAERS Safety Report 10036526 (Version 3)
Quarter: 2014Q4

REPORT INFORMATION
  Report Type: Report from Study
  Country: IT (occurrence: IT)
  Receive Date: 20140326
  Receipt Date: 20141027
  Transmission Date: 20150528
  Serious: Yes (Hospitalization, Other)
  Sender: FDA-Public Use
  Company Number: IT-009507513-1002USA03084

PATIENT
  Age: 63 Year
  Sex: Male
  Weight: 92 kg

DRUGS (7)
  1. METFORMIN [Suspect]
     Active Substance: METFORMIN HYDROCHLORIDE
     Dosage: 3000MG DAILY
     Route: 048
     Dates: start: 20091006
  2. CARVEDILOL. [Suspect]
     Active Substance: CARVEDILOL
     Dosage: 25MG DAILY
     Route: 048
     Dates: start: 20091006
  3. EZETIMIBE AND SIMVASTATIN [Suspect]
     Active Substance: EZETIMIBE\SIMVASTATIN
     Indication: ACUTE CORONARY SYNDROME
     Dosage: UNK
     Route: 048
     Dates: start: 20091005
  4. GLICLAZIDE [Suspect]
     Active Substance: GLICLAZIDE
     Dosage: 240MG DAILY
     Route: 048
     Dates: start: 20091006
  5. CARDIOASPIRIN [Concomitant]
     Active Substance: ASPIRIN
     Dosage: 100MG DAILY
     Route: 048
     Dates: start: 19980101
  6. OMEPRAZOLE. [Suspect]
     Active Substance: OMEPRAZOLE
     Dosage: 20MG DAILY
     Route: 048
     Dates: start: 20090801
  7. CANDESARTAN CILEXETIL (+) HYDROCHLOROTHIAZIDE [Concomitant]
     Active Substance: CANDESARTAN CILEXETIL\HYDROCHLOROTHIAZIDE
     Dosage: 16/12.5 MG DAILY
     Route: 048
     Dates: start: 20090801

REACTIONS (5)
  - Dermatomyositis [Not Recovered/Not Resolved]
  - Dermatomyositis [Recovered/Resolved]
  - Dermatomyositis [Recovered/Resolved]
  - Rash papular [Recovered/Resolved]
  - Myalgia [Not Recovered/Not Resolved]

NARRATIVE: CASE EVENT DATE: 20100119
